FAERS Safety Report 18478184 (Version 1)
Quarter: 2020Q4

REPORT INFORMATION
  Report Type: Spontaneous
  Country: US (occurrence: US)
  Receive Date: 20201108
  Receipt Date: 20201108
  Transmission Date: 20210114
  Serious: Yes (Hospitalization)
  Sender: FDA-Public Use
  Company Number: US-BIOGEN-2020BI00941600

PATIENT
  Sex: Male
  Weight: 40.22 kg

DRUGS (4)
  1. SPINRAZA [Suspect]
     Active Substance: NUSINERSEN
     Indication: SPINAL MUSCULAR ATROPHY
     Dosage: LOADING DOSE: THREE LOADING DOSES (12MG/5ML EACH) AT 14D INTERVAL
     Route: 037
  2. SPINRAZA [Suspect]
     Active Substance: NUSINERSEN
     Dosage: MAINTENANCE DOSE: 12MG/5ML ONCE EVERY 4 MONTHS THEREAFTER
     Route: 037
  3. EVRYSDI [Concomitant]
     Active Substance: RISDIPLAM
     Indication: PRODUCT USED FOR UNKNOWN INDICATION
     Route: 065
  4. SPINRAZA [Suspect]
     Active Substance: NUSINERSEN
     Dosage: LOADING DOSE: FOURTH LOADING DOSE (12MG/5ML) SHOULD BE ADMINISTERED 30 DAYS AFTER THIRD DOSE
     Route: 037

REACTIONS (1)
  - Pneumonia [Unknown]
